FAERS Safety Report 5627260-3 (Version None)
Quarter: 2008Q1

REPORT INFORMATION
  Report Type: 
  Country: None (occurrence: None)
  Receive Date: 20080129
  Receipt Date: 20071022
  Transmission Date: 20080703
  Serious: Yes (Hospitalization)
  Sender: FDA-Public Use
  Company Number: 8024767

PATIENT
  Age: 79 Year
  Sex: Female
  Weight: 68.5 kg

DRUGS (3)
  1. KEPPRA [Suspect]
     Indication: CONVULSION
     Dosage: 3 DF /D
     Dates: start: 20060101
  2. BEXTRA [Suspect]
     Indication: ARTHRALGIA
  3. PREVACID [Concomitant]

REACTIONS (2)
  - CONVULSION [None]
  - INJURY [None]
